FAERS Safety Report 6228201-0 (Version None)
Quarter: 2009Q2

REPORT INFORMATION
  Report Type: 
  Country: None (occurrence: None)
  Receive Date: 20090612
  Receipt Date: 20090608
  Transmission Date: 20091009
  Serious: Yes (Hospitalization)
  Sender: FDA-Public Use
  Company Number: US-BIOGENIDEC-2009BI013916

PATIENT
  Age: 63 Year
  Sex: Female

DRUGS (2)
  1. TYSABRI [Suspect]
     Indication: MULTIPLE SCLEROSIS
     Route: 042
     Dates: start: 20080730
  2. CARBAMAZEPINE [Concomitant]
     Indication: PAIN

REACTIONS (3)
  - BLOOD SODIUM DECREASED [None]
  - CYSTITIS [None]
  - MULTIPLE SCLEROSIS RELAPSE [None]
